FAERS Safety Report 25270388 (Version 1)
Quarter: 2025Q2

REPORT INFORMATION
  Report Type: Spontaneous
  Country: FI (occurrence: None)
  Receive Date: 20250505
  Receipt Date: 20250505
  Transmission Date: 20250717
  Serious: Yes (Other)
  Sender: INCYTE
  Company Number: FI-002147023-NVSC2025FI067403

PATIENT
  Age: 58 Year

DRUGS (2)
  1. RUXOLITINIB [Suspect]
     Active Substance: RUXOLITINIB
     Indication: Polycythaemia vera
     Route: 065
  2. RUXOLITINIB [Suspect]
     Active Substance: RUXOLITINIB
     Indication: Myelofibrosis

REACTIONS (1)
  - Cardiac disorder [Unknown]
